FAERS Safety Report 20411437 (Version 3)
Quarter: 2023Q4

REPORT INFORMATION
  Report Type: Report from Study
  Country: PH (occurrence: PH)
  Receive Date: 20220201
  Receipt Date: 20231102
  Transmission Date: 20240110
  Serious: Yes (Hospitalization)
  Sender: FDA-Public Use
  Company Number: PH-TAKEDA-2021TUS060268

PATIENT
  Sex: Female

DRUGS (1)
  1. BRENTUXIMAB VEDOTIN [Suspect]
     Active Substance: BRENTUXIMAB VEDOTIN
     Indication: Hodgkin^s disease refractory
     Dosage: 100 MILLIGRAM
     Route: 042
     Dates: start: 20210823

REACTIONS (3)
  - Infusion related hypersensitivity reaction [Unknown]
  - Oxygen saturation decreased [Unknown]
  - SARS-CoV-2 test positive [Unknown]
